FAERS Safety Report 4750319-X (Version None)
Quarter: 2005Q3

REPORT INFORMATION
  Report Type: 
  Country: None (occurrence: None)
  Receive Date: 20050823
  Receipt Date: 20040120
  Transmission Date: 20060218
  Serious: Yes (Other)
  Sender: FDA-Public Use
  Company Number: KR-JNJFOC-20050804525

PATIENT
  Sex: Female

DRUGS (5)
  1. REMINYL [Suspect]
     Indication: DEMENTIA
     Route: 048
     Dates: start: 20030603, end: 20030721
  2. RISPERDAL [Suspect]
     Dates: start: 20030603, end: 20030721
  3. TANAMIN [Concomitant]
     Route: 048
     Dates: start: 20030603, end: 20030721
  4. STILNOX [Concomitant]
     Indication: SLEEP DISORDER
     Route: 048
     Dates: start: 20030603, end: 20030729
  5. CHLORPROMAZINE HCL [Concomitant]
     Route: 048
     Dates: start: 20030603, end: 20030729

REACTIONS (2)
  - GAMMA-GLUTAMYLTRANSFERASE INCREASED [None]
  - JAUNDICE [None]
